FAERS Safety Report 23126745 (Version 4)
Quarter: 2023Q4

REPORT INFORMATION
  Report Type: Spontaneous
  Country: US (occurrence: US)
  Receive Date: 20231030
  Receipt Date: 20231219
  Transmission Date: 20240110
  Serious: No
  Sender: FDA-Public Use
  Company Number: US-PFIZER INC-PV202200094383

PATIENT
  Age: 61 Year
  Sex: Male

DRUGS (11)
  1. RETACRIT [Suspect]
     Active Substance: EPOETIN ALFA-EPBX
     Indication: Nephrogenic anaemia
     Dosage: 3 ML, WEEKLY (FOR HGB +LT)
     Route: 058
  2. RETACRIT [Suspect]
     Active Substance: EPOETIN ALFA-EPBX
     Dosage: 10-30,000 UNITS, WEEKLY
     Route: 058
  3. RETACRIT [Suspect]
     Active Substance: EPOETIN ALFA-EPBX
     Dosage: 30000 IU, 4 TIMES WEEKLY
  4. RETACRIT [Suspect]
     Active Substance: EPOETIN ALFA-EPBX
     Dosage: 30000 IU, WEEKLY
  5. RETACRIT [Suspect]
     Active Substance: EPOETIN ALFA-EPBX
     Dosage: 10000 IU
  6. RETACRIT [Suspect]
     Active Substance: EPOETIN ALFA-EPBX
     Dosage: 1.5 ML, WEEKLY
     Route: 058
     Dates: start: 20221014
  7. RETACRIT [Suspect]
     Active Substance: EPOETIN ALFA-EPBX
     Dosage: 20000 IU, ONCE A WEEK
     Route: 058
     Dates: start: 20221021
  8. RETACRIT [Suspect]
     Active Substance: EPOETIN ALFA-EPBX
     Dosage: 3 ML, WEEKLY FOR HGB AND IT
     Route: 058
  9. RETACRIT [Suspect]
     Active Substance: EPOETIN ALFA-EPBX
     Dosage: 0.75 ML (10 - 30000 IU), WEEKLY FOR HGB + LT
     Route: 058
  10. RETACRIT [Suspect]
     Active Substance: EPOETIN ALFA-EPBX
     Dosage: 30000 IU, [DIRECTIONS: 3 ML WEEKLY - INJECT 30,000 UNITS WEEKLY FOR HGB LESS THAN 10]
  11. RETACRIT [Suspect]
     Active Substance: EPOETIN ALFA-EPBX
     Dosage: 4 ML, WEEKLY [INJECT 40,000 UNITS WEEKLY FOR HGB LESS THAN 10; CBC EVERY 2 WKS]

REACTIONS (2)
  - Off label use [Unknown]
  - Nasopharyngitis [Unknown]
